FAERS Safety Report 18384862 (Version 1)
Quarter: 2020Q4

REPORT INFORMATION
  Report Type: Report from Study
  Country: BR (occurrence: BR)
  Receive Date: 20201014
  Receipt Date: 20201014
  Transmission Date: 20210114
  Serious: Yes (Other)
  Sender: FDA-Public Use
  Company Number: NVSC2020BR274316

PATIENT
  Sex: Female

DRUGS (1)
  1. TEGRETOL XR [Suspect]
     Active Substance: CARBAMAZEPINE
     Indication: PRODUCT USED FOR UNKNOWN INDICATION
     Dosage: 200 MG, BID, 1 IN MORNING AND 1 IN NIGHT
     Route: 065

REACTIONS (5)
  - Ill-defined disorder [Unknown]
  - Depression [Unknown]
  - Seizure [Unknown]
  - Hypoacusis [Unknown]
  - Syncope [Unknown]
